FAERS Safety Report 7900209-6 (Version None)
Quarter: 2011Q4

REPORT INFORMATION
  Report Type: 
  Country: None (occurrence: None)
  Receive Date: 20111108
  Receipt Date: 20111026
  Transmission Date: 20120403
  Serious: Yes (Other)
  Sender: FDA-Public Use
  Company Number: TR-RANBAXY-2011RR-49972

PATIENT
  Age: 47 Year
  Sex: Male

DRUGS (4)
  1. MIVACURIUM CHLORIDE [Suspect]
     Indication: ENDOTRACHEAL INTUBATION
     Dosage: 17 MG, UNK
     Route: 065
  2. SERTRALINE HYDROCHLORIDE [Suspect]
     Indication: MAJOR DEPRESSION
     Dosage: 100 MG/DAY
     Route: 065
  3. PROPOFOL [Concomitant]
     Indication: INDUCTION OF ANAESTHESIA
     Route: 065
  4. ISOFLURANE [Concomitant]
     Indication: GENERAL ANAESTHESIA
     Dosage: UNK
     Route: 065

REACTIONS (2)
  - DRUG INTERACTION [None]
  - NEUROMUSCULAR BLOCKADE [None]
